FAERS Safety Report 17848156 (Version 3)
Quarter: 2022Q2

REPORT INFORMATION
  Report Type: Spontaneous
  Country: US (occurrence: US)
  Receive Date: 20200601
  Receipt Date: 20220630
  Transmission Date: 20220721
  Serious: Yes (Other)
  Sender: FDA-Public Use
  Company Number: US-TAKEDA-2020TUS024415

PATIENT

DRUGS (87)
  1. PREVACID [Suspect]
     Active Substance: LANSOPRAZOLE
     Indication: Gastrooesophageal reflux disease
     Dosage: UNK
     Route: 048
     Dates: start: 2005, end: 2017
  2. PREVACID [Suspect]
     Active Substance: LANSOPRAZOLE
     Dosage: 30 MILLIGRAM, QD
     Route: 048
     Dates: start: 2005, end: 2009
  3. NEXIUM [Suspect]
     Active Substance: ESOMEPRAZOLE MAGNESIUM
     Indication: Gastrooesophageal reflux disease
     Dosage: UNK
     Route: 048
     Dates: start: 2005, end: 2017
  4. NEXIUM [Suspect]
     Active Substance: ESOMEPRAZOLE MAGNESIUM
     Dosage: 40 MILLIGRAM, QD
     Route: 048
     Dates: start: 2009, end: 2015
  5. ESOMEPRAZOLE [Suspect]
     Active Substance: ESOMEPRAZOLE
     Indication: Gastrooesophageal reflux disease
     Dosage: 40 MILLIGRAM, QD
     Route: 048
     Dates: start: 2015, end: 2022
  6. TORSEMIDE [Concomitant]
     Active Substance: TORSEMIDE
     Indication: Hypertension
     Dosage: UNK
     Dates: start: 2005
  7. TORSEMIDE [Concomitant]
     Active Substance: TORSEMIDE
     Indication: Fluid retention
     Dosage: UNK
     Dates: start: 2007, end: 2017
  8. AMLODIPINE BESYLATE [Concomitant]
     Active Substance: AMLODIPINE BESYLATE
     Indication: Hypertension
     Dosage: UNK
     Dates: start: 2007
  9. AMLODIPINE BESYLATE [Concomitant]
     Active Substance: AMLODIPINE BESYLATE
     Indication: Coronary artery disease
     Dosage: UNK
     Dates: start: 2010, end: 2017
  10. TERAZOSIN [Concomitant]
     Active Substance: TERAZOSIN HYDROCHLORIDE
     Indication: Hypertension
     Dosage: UNK
     Dates: start: 2012, end: 2018
  11. TERAZOSIN [Concomitant]
     Active Substance: TERAZOSIN HYDROCHLORIDE
     Indication: Prostatomegaly
  12. ACETAMINOPHEN [Concomitant]
     Active Substance: ACETAMINOPHEN
     Indication: Pain
     Dosage: UNK
     Dates: start: 2016
  13. ACETAMINOPHEN [Concomitant]
     Active Substance: ACETAMINOPHEN
     Indication: Pyrexia
  14. HYDRALAZINE [Concomitant]
     Active Substance: HYDRALAZINE HYDROCHLORIDE
     Indication: Hypertension
     Dosage: UNK
     Dates: start: 2012, end: 2013
  15. HYDRALAZINE [Concomitant]
     Active Substance: HYDRALAZINE HYDROCHLORIDE
     Dosage: UNK
     Dates: start: 2016, end: 2018
  16. ALLOPURINOL [Concomitant]
     Active Substance: ALLOPURINOL
     Indication: Gout
     Dosage: UNK
     Dates: start: 2010, end: 2013
  17. ALLOPURINOL [Concomitant]
     Active Substance: ALLOPURINOL
     Indication: Nephrolithiasis
     Dosage: UNK
     Dates: start: 2015, end: 2017
  18. ALLOPURINOL [Concomitant]
     Active Substance: ALLOPURINOL
     Dosage: UNK
     Dates: start: 2021
  19. POTASSIUM CHLORIDE [Concomitant]
     Active Substance: POTASSIUM CHLORIDE
     Indication: Hypokalaemia
     Dosage: UNK
     Dates: start: 2006
  20. POTASSIUM CHLORIDE [Concomitant]
     Active Substance: POTASSIUM CHLORIDE
     Dosage: UNK
     Dates: start: 2011, end: 2014
  21. POTASSIUM CHLORIDE [Concomitant]
     Active Substance: POTASSIUM CHLORIDE
     Dosage: UNK
     Dates: start: 2021
  22. ATORVASTATIN [Concomitant]
     Active Substance: ATORVASTATIN
     Indication: Blood cholesterol increased
     Dosage: UNK
     Dates: start: 2011, end: 2018
  23. ATORVASTATIN [Concomitant]
     Active Substance: ATORVASTATIN
     Indication: Blood triglycerides increased
  24. PERINDOPRIL ERBUMINE [Concomitant]
     Active Substance: PERINDOPRIL ERBUMINE
     Indication: Hypertension
     Dosage: UNK
     Dates: start: 2010
  25. PERINDOPRIL ERBUMINE [Concomitant]
     Active Substance: PERINDOPRIL ERBUMINE
     Indication: Cardiac disorder
     Dosage: UNK
     Dates: start: 2012, end: 2017
  26. BYSTOLIC [Concomitant]
     Active Substance: NEBIVOLOL HYDROCHLORIDE
     Indication: Hypertension
     Dosage: UNK
     Dates: start: 2011, end: 2014
  27. ACEON [Concomitant]
     Active Substance: PERINDOPRIL ERBUMINE
     Indication: Hypertension
     Dosage: UNK
     Dates: start: 2006, end: 2007
  28. ACEON [Concomitant]
     Active Substance: PERINDOPRIL ERBUMINE
     Dosage: UNK
     Dates: start: 2009
  29. ACEON [Concomitant]
     Active Substance: PERINDOPRIL ERBUMINE
     Dosage: UNK
     Dates: start: 2012, end: 2014
  30. BISOPROLOL FUMARATE\HYDROCHLOROTHIAZIDE [Concomitant]
     Active Substance: BISOPROLOL FUMARATE\HYDROCHLOROTHIAZIDE
     Indication: Hypertension
     Dosage: UNK
     Dates: start: 2005
  31. BISOPROLOL FUMARATE\HYDROCHLOROTHIAZIDE [Concomitant]
     Active Substance: BISOPROLOL FUMARATE\HYDROCHLOROTHIAZIDE
     Dosage: UNK
     Dates: start: 2007, end: 2011
  32. LIPITOR [Concomitant]
     Active Substance: ATORVASTATIN CALCIUM
     Indication: Blood cholesterol increased
     Dosage: UNK
     Dates: start: 2005, end: 2011
  33. LIPITOR [Concomitant]
     Active Substance: ATORVASTATIN CALCIUM
     Indication: Blood triglycerides increased
     Dosage: UNK
     Dates: start: 2005
  34. POTASSIUM BICARBONATE [Concomitant]
     Active Substance: POTASSIUM BICARBONATE
     Indication: Hypokalaemia
     Dosage: UNK
     Dates: start: 2005
  35. POTASSIUM BICARBONATE [Concomitant]
     Active Substance: POTASSIUM BICARBONATE
     Dosage: UNK
     Dates: start: 2007, end: 2011
  36. KLOR-CON [Concomitant]
     Active Substance: POTASSIUM CHLORIDE
     Indication: Hypokalaemia
     Dosage: UNK
     Dates: start: 2006
  37. KLOR-CON [Concomitant]
     Active Substance: POTASSIUM CHLORIDE
     Dosage: UNK
     Dates: start: 2008, end: 2011
  38. KLOR-CON [Concomitant]
     Active Substance: POTASSIUM CHLORIDE
     Dosage: UNK
     Dates: start: 2014, end: 2018
  39. CRESTOR [Concomitant]
     Active Substance: ROSUVASTATIN CALCIUM
     Indication: Blood cholesterol increased
     Dosage: UNK
     Dates: start: 2012
  40. CRESTOR [Concomitant]
     Active Substance: ROSUVASTATIN CALCIUM
     Indication: Blood triglycerides increased
  41. CYCLOBENZAPRINE [Concomitant]
     Active Substance: CYCLOBENZAPRINE
     Indication: Pain
     Dosage: UNK
     Dates: start: 2012
  42. CYCLOBENZAPRINE [Concomitant]
     Active Substance: CYCLOBENZAPRINE
     Indication: Muscle spasms
  43. OXISTAT [Concomitant]
     Active Substance: OXICONAZOLE NITRATE
     Indication: Skin infection
     Dosage: UNK
     Dates: start: 2009
  44. OXISTAT [Concomitant]
     Active Substance: OXICONAZOLE NITRATE
     Indication: Fungal infection
  45. PROMETHAZINE [Concomitant]
     Active Substance: PROMETHAZINE HYDROCHLORIDE
     Indication: Multiple allergies
     Dosage: UNK
     Dates: start: 2006
  46. PROMETHAZINE [Concomitant]
     Active Substance: PROMETHAZINE HYDROCHLORIDE
     Indication: Motion sickness
  47. NORVASC [Concomitant]
     Active Substance: AMLODIPINE BESYLATE
     Indication: Hypertension
     Dosage: UNK
     Dates: start: 2006, end: 2007
  48. NORVASC [Concomitant]
     Active Substance: AMLODIPINE BESYLATE
     Indication: Chest pain
  49. PREVPAC [Concomitant]
     Active Substance: AMOXICILLIN\CLARITHROMYCIN\LANSOPRAZOLE
     Indication: Dyspepsia
     Dosage: UNK
     Dates: start: 2006
  50. TRAMADOL [Concomitant]
     Active Substance: TRAMADOL
     Indication: Pain
     Dosage: UNK
     Dates: start: 2006, end: 2012
  51. TRIMETHOBENZAMIDE [Concomitant]
     Active Substance: TRIMETHOBENZAMIDE
     Indication: Nausea
     Dosage: UNK
     Dates: start: 2014
  52. TRIMETHOBENZAMIDE [Concomitant]
     Active Substance: TRIMETHOBENZAMIDE
     Indication: Vomiting
     Dosage: UNK
     Dates: start: 2018
  53. METOPROLOL SUCCINATE [Concomitant]
     Active Substance: METOPROLOL SUCCINATE
     Indication: Hypertension
     Dosage: UNK
     Dates: start: 2014, end: 2018
  54. METOPROLOL SUCCINATE [Concomitant]
     Active Substance: METOPROLOL SUCCINATE
     Indication: Chest pain
  55. METOPROLOL SUCCINATE [Concomitant]
     Active Substance: METOPROLOL SUCCINATE
     Indication: Cardiac failure
  56. LOSARTAN POTASSIUM [Concomitant]
     Active Substance: LOSARTAN POTASSIUM
     Indication: Hypertension
     Dosage: UNK
     Dates: start: 2016, end: 2018
  57. AMOXICILLIN\CLAVULANIC ACID [Concomitant]
     Active Substance: AMOXICILLIN\CLAVULANIC ACID
     Indication: Infection
     Dosage: UNK
     Dates: start: 2016
  58. BUMETANIDE [Concomitant]
     Active Substance: BUMETANIDE
     Indication: Fluid retention
     Dosage: UNK
     Dates: start: 2016, end: 2018
  59. BUMETANIDE [Concomitant]
     Active Substance: BUMETANIDE
     Indication: Hypertension
  60. PREDNISONE [Concomitant]
     Active Substance: PREDNISONE
     Indication: Inflammation
     Dosage: UNK
     Dates: start: 2016
  61. PREDNISONE [Concomitant]
     Active Substance: PREDNISONE
     Dosage: UNK
     Dates: start: 2021
  62. SULFAMETHOXAZOLE [Concomitant]
     Active Substance: SULFAMETHOXAZOLE
     Indication: Infection
     Dosage: UNK
     Dates: start: 2016
  63. OXYCODONE AND ACETAMINOPHEN [Concomitant]
     Active Substance: ACETAMINOPHEN\OXYCODONE HYDROCHLORIDE
     Indication: Pain
     Dosage: UNK
     Dates: start: 2016
  64. METOLAZONE [Concomitant]
     Active Substance: METOLAZONE
     Indication: Fluid retention
     Dosage: UNK
     Dates: start: 2017
  65. METOLAZONE [Concomitant]
     Active Substance: METOLAZONE
     Indication: Hypertension
  66. ULORIC [Concomitant]
     Active Substance: FEBUXOSTAT
     Indication: Gout
     Dosage: UNK
     Dates: start: 2018
  67. ONDANSETRON HCL [Concomitant]
     Active Substance: ONDANSETRON HYDROCHLORIDE
     Indication: Nausea
     Dosage: UNK
     Dates: start: 2018
  68. ONDANSETRON HCL [Concomitant]
     Active Substance: ONDANSETRON HYDROCHLORIDE
     Indication: Vomiting
  69. TOBRAMYCIN AND DEXAMETHASONE [Concomitant]
     Active Substance: DEXAMETHASONE\TOBRAMYCIN
     Indication: Eye infection
     Dosage: UNK
     Dates: start: 2018
  70. DEXAMETHASONE [Concomitant]
     Active Substance: DEXAMETHASONE
     Indication: Inflammation
     Dosage: UNK
     Dates: start: 2018
  71. GAVILYTE G [Concomitant]
     Active Substance: POLYETHYLENE GLYCOL 3350\POTASSIUM CHLORIDE\SODIUM BICARBONATE\SODIUM CHLORIDE\SODIUM SULFATE
     Dosage: UNK
     Dates: start: 2018
  72. HYDROCODONE BITARTRATE AND ACETAMINOPHEN [Concomitant]
     Active Substance: ACETAMINOPHEN\HYDROCODONE BITARTRATE
     Indication: Pain
     Dosage: UNK
     Dates: start: 2018
  73. TYLENOL [Concomitant]
     Active Substance: ACETAMINOPHEN
     Indication: Headache
     Dosage: UNK
  74. Coricidin [Concomitant]
     Indication: Influenza
     Dosage: UNK
  75. CALCIUM CARBONATE;FAMOTIDINE;MAGNESIUM HYDROXIDE [Concomitant]
     Dosage: UNK
     Dates: start: 2022
  76. TACROLIMUS [Concomitant]
     Active Substance: TACROLIMUS
     Dosage: UNK
     Dates: start: 2021
  77. MYCOPHENOLIC ACID [Concomitant]
     Active Substance: MYCOPHENOLIC ACID
     Dosage: UNK
     Dates: start: 2021
  78. BACTRIM [Concomitant]
     Active Substance: SULFAMETHOXAZOLE\TRIMETHOPRIM
     Indication: Infection
     Dosage: UNK
     Dates: start: 2021
  79. ASPIRIN [Concomitant]
     Active Substance: ASPIRIN
     Indication: Pain
     Dosage: UNK
     Dates: start: 2021
  80. ASPIRIN [Concomitant]
     Active Substance: ASPIRIN
     Indication: Pyrexia
  81. ASPIRIN [Concomitant]
     Active Substance: ASPIRIN
     Indication: Headache
  82. ASPIRIN [Concomitant]
     Active Substance: ASPIRIN
     Indication: Inflammation
  83. VITAMIN D NOS [Concomitant]
     Active Substance: VITAMIN D NOS
     Indication: Vitamin D deficiency
     Dosage: UNK
     Dates: start: 2021
  84. CARVEDILOL [Concomitant]
     Active Substance: CARVEDILOL
     Indication: Blood pressure increased
     Dosage: UNK
     Dates: start: 2021
  85. CARVEDILOL [Concomitant]
     Active Substance: CARVEDILOL
     Indication: Cardiac failure
  86. FUROSEMIDE [Concomitant]
     Active Substance: FUROSEMIDE
     Indication: Fluid retention
     Dosage: UNK
     Dates: start: 2021
  87. FUROSEMIDE [Concomitant]
     Active Substance: FUROSEMIDE
     Indication: Swelling

REACTIONS (2)
  - Chronic kidney disease [Not Recovered/Not Resolved]
  - End stage renal disease [Not Recovered/Not Resolved]

NARRATIVE: CASE EVENT DATE: 20170101
